FAERS Safety Report 6119642-0 (Version None)
Quarter: 2009Q1

REPORT INFORMATION
  Report Type: 
  Country: None (occurrence: None)
  Receive Date: 20090311
  Receipt Date: 20090304
  Transmission Date: 20090719
  Serious: Yes (Life-Threatening)
  Sender: FDA-Public Use
  Company Number: GXKR2009DE02767

PATIENT
  Age: 76 Year
  Sex: Male

DRUGS (7)
  1. ASPIRIN [Suspect]
     Indication: PROPHYLAXIS
     Dosage: 100 MG, QD, ORAL
     Route: 048
     Dates: end: 20081126
  2. METFORMIN HCL [Suspect]
     Indication: TYPE 2 DIABETES MELLITUS
     Dosage: 1000 MG, BID, ORAL
     Route: 048
     Dates: start: 20071201, end: 20081126
  3. AMARYL [Suspect]
     Indication: TYPE 2 DIABETES MELLITUS
     Dosage: 1 MG, QD, ORAL
     Route: 048
     Dates: start: 20071201, end: 20081126
  4. DELIX (RAMIPRIL) 2.5MG [Suspect]
     Indication: HYPERTENSION
     Dosage: 2.5 MG, QD,ORAL
     Route: 048
  5. LOCOL (FLUVASTATIN SODIUM) 80MG [Suspect]
     Indication: HYPERCHOLESTEROLAEMIA
     Dosage: 80 MG, QD,ORAL
     Route: 048
     Dates: end: 20081125
  6. METOPROLOL SUCCINATE [Concomitant]
  7. BERLTHYROX (LEVOTHYROXINE SODIUM) [Concomitant]

REACTIONS (5)
  - HAEMODIALYSIS [None]
  - HYPOGLYCAEMIA [None]
  - RENAL FAILURE ACUTE [None]
  - RHABDOMYOLYSIS [None]
  - SYNCOPE [None]
